FAERS Safety Report 21217148 (Version 4)
Quarter: 2022Q4

REPORT INFORMATION
  Report Type: Spontaneous
  Country: US (occurrence: US)
  Receive Date: 20220816
  Receipt Date: 20221019
  Transmission Date: 20230112
  Serious: Yes (Other)
  Sender: FDA-Public Use
  Company Number: US-BAYER-2022A113929

PATIENT
  Age: 35 Year
  Sex: Female
  Weight: 92.517 kg

DRUGS (1)
  1. MIRENA [Suspect]
     Active Substance: LEVONORGESTREL
     Indication: Contraception
     Dosage: 20?G/DAY
     Route: 015
     Dates: start: 201603, end: 20220711

REACTIONS (4)
  - Vaginal haemorrhage [None]
  - Device breakage [None]
  - Embedded device [None]
  - Device physical property issue [None]

NARRATIVE: CASE EVENT DATE: 20220711
